FAERS Safety Report 13748943 (Version 1)
Quarter: 2017Q3

REPORT INFORMATION
  Report Type: Spontaneous
  Country: US (occurrence: US)
  Receive Date: 20170712
  Receipt Date: 20170712
  Transmission Date: 20171127
  Serious: Yes (Other)
  Sender: FDA-Public Use
  Company Number: None

PATIENT
  Age: 34 Year
  Sex: Male
  Weight: 67.5 kg

DRUGS (3)
  1. ZUBSOLV [Concomitant]
     Active Substance: BUPRENORPHINE HYDROCHLORIDE\NALOXONE HYDROCHLORIDE
  2. SUBOXONE [Concomitant]
     Active Substance: BUPRENORPHINE HYDROCHLORIDE\NALOXONE HYDROCHLORIDE
  3. BUPRENORPHINE/NALOXONE [Suspect]
     Active Substance: BUPRENORPHINE\NALOXONE
     Indication: DRUG DEPENDENCE
     Dosage: ?          OTHER DOSE:MG;?
     Route: 060
     Dates: start: 20161207, end: 20161227

REACTIONS (5)
  - Abdominal discomfort [None]
  - Vomiting [None]
  - Rash [None]
  - Headache [None]
  - Blood pressure increased [None]

NARRATIVE: CASE EVENT DATE: 20161207
